FAERS Safety Report 16540736 (Version 2)
Quarter: 2019Q3

REPORT INFORMATION
  Report Type: Report from Study
  Country: CN (occurrence: CN)
  Receive Date: 20190708
  Receipt Date: 20190708
  Transmission Date: 20191004
  Serious: Yes (Death)
  Sender: FDA-Public Use
  Company Number: CN-PFIZER INC-2019279245

PATIENT

DRUGS (2)
  1. LINEZOLID. [Suspect]
     Active Substance: LINEZOLID
  2. ENTECAVIR. [Interacting]
     Active Substance: ENTECAVIR

REACTIONS (2)
  - Lactic acidosis [Fatal]
  - Drug interaction [Fatal]
